FAERS Safety Report 6305848-4 (Version None)
Quarter: 2009Q3

REPORT INFORMATION
  Report Type: 
  Country: None (occurrence: None)
  Receive Date: 20090812
  Receipt Date: 20090810
  Transmission Date: 20100115
  Serious: Yes (Hospitalization)
  Sender: FDA-Public Use
  Company Number: US-BRISTOL-MYERS SQUIBB COMPANY-14681621

PATIENT
  Age: 61 Year
  Sex: Female
  Weight: 112 kg

DRUGS (17)
  1. ABILIFY [Suspect]
     Indication: BIPOLAR DISORDER
     Route: 048
     Dates: start: 20030908
  2. ABILIFY [Suspect]
     Indication: SCHIZOPHRENIA, PARANOID TYPE
     Route: 048
     Dates: start: 20030908
  3. PROZAC [Concomitant]
     Dosage: EARLY JUNE
  4. ACTOS [Concomitant]
  5. DIOVAN [Concomitant]
  6. HYDROXYZINE [Concomitant]
  7. METOPROLOL [Concomitant]
  8. LEVOTHROID [Concomitant]
  9. VITAMIN D [Concomitant]
  10. LEVOTHYROXINE [Concomitant]
  11. WELLBUTRIN [Concomitant]
  12. AMBIEN [Concomitant]
     Dosage: HS PRN
  13. BENADRYL [Concomitant]
  14. CALCIUM [Concomitant]
  15. MULTI-VITAMIN [Concomitant]
  16. BIOTIN [Concomitant]
  17. OMEPRAZOLE [Concomitant]

REACTIONS (9)
  - CHEST PAIN [None]
  - COUGH [None]
  - DISTURBANCE IN ATTENTION [None]
  - DYSGEUSIA [None]
  - EYE HAEMORRHAGE [None]
  - GASTROOESOPHAGEAL REFLUX DISEASE [None]
  - MEMORY IMPAIRMENT [None]
  - MUSCLE SPASMS [None]
  - TARDIVE DYSKINESIA [None]
